FAERS Safety Report 7712091-0 (Version None)
Quarter: 2011Q3

REPORT INFORMATION
  Report Type: 
  Country: None (occurrence: None)
  Receive Date: 20110826
  Receipt Date: 20110818
  Transmission Date: 20111222
  Serious: Yes (Other)
  Sender: FDA-Public Use
  Company Number: US-JNJFOC-20110808912

PATIENT
  Sex: Male
  Weight: 95.26 kg

DRUGS (1)
  1. REMICADE [Suspect]
     Indication: COLITIS ULCERATIVE
     Route: 042
     Dates: start: 20101001, end: 20110401

REACTIONS (3)
  - FAECAL INCONTINENCE [None]
  - COLITIS ULCERATIVE [None]
  - ABNORMAL LOSS OF WEIGHT [None]
